FAERS Safety Report 16998053 (Version 1)
Quarter: 2019Q4

REPORT INFORMATION
  Report Type: Spontaneous
  Country: HR (occurrence: HR)
  Receive Date: 20191106
  Receipt Date: 20191106
  Transmission Date: 20200122
  Serious: Yes (Other)
  Sender: FDA-Public Use
  Company Number: HR-TEVA-2019-HR-1131078

PATIENT
  Sex: Female

DRUGS (4)
  1. SANVAL [Suspect]
     Active Substance: ZOLPIDEM TARTRATE
     Route: 048
     Dates: start: 20190709, end: 20190709
  2. AMORA [AMLODIPINE\RAMIPRIL] [Suspect]
     Active Substance: AMLODIPINE\RAMIPRIL
     Route: 048
     Dates: start: 20190709, end: 20190709
  3. PRILEN (RAMIPRIL) [Suspect]
     Active Substance: RAMIPRIL
     Route: 048
     Dates: start: 20190709, end: 20190709
  4. HELEX [Suspect]
     Active Substance: ALPRAZOLAM
     Route: 048
     Dates: start: 20190709, end: 20190709

REACTIONS (3)
  - Hypotension [Unknown]
  - Accidental overdose [Unknown]
  - Loss of consciousness [Unknown]

NARRATIVE: CASE EVENT DATE: 20190709
